FAERS Safety Report 8170934-3 (Version None)
Quarter: 2012Q1

REPORT INFORMATION
  Report Type: 
  Country: None (occurrence: None)
  Receive Date: 20120228
  Receipt Date: 20120220
  Transmission Date: 20120608
  Serious: Yes (Congenital Anomaly)
  Sender: FDA-Public Use
  Company Number: US-ROXANE LABORATORIES, INC.-2012-RO-00684RO

PATIENT
  Age: 26 Month
  Sex: Male

DRUGS (3)
  1. NITROGLYCERIN [Suspect]
     Indication: FOETAL EXPOSURE DURING PREGNANCY
     Route: 064
  2. DIGOXIN [Suspect]
     Indication: FOETAL EXPOSURE DURING PREGNANCY
     Route: 064
  3. METOPROLOL SUCCINATE [Suspect]
     Indication: FOETAL EXPOSURE DURING PREGNANCY
     Route: 064

REACTIONS (6)
  - ARACHNOID CYST [None]
  - ALOPECIA [None]
  - MORNING GLORY SYNDROME [None]
  - STRABISMUS [None]
  - DYSMORPHISM [None]
  - DERMOID CYST [None]
